FAERS Safety Report 10507108 (Version 2)
Quarter: 2014Q4

REPORT INFORMATION
  Report Type: Spontaneous
  Country: HU (occurrence: HU)
  Receive Date: 20141009
  Receipt Date: 20141013
  Transmission Date: 20150528
  Serious: Yes (Other)
  Sender: FDA-Public Use
  Company Number: HU-ROCHE-1471273

PATIENT
  Age: 75 Year
  Sex: Female

DRUGS (4)
  1. ZELBORAF [Suspect]
     Active Substance: VEMURAFENIB
     Indication: METASTATIC MALIGNANT MELANOMA
     Route: 048
     Dates: start: 201409, end: 201409
  2. FURON [Concomitant]
  3. NORTIVAN [Concomitant]
  4. MILURIT [Concomitant]
     Active Substance: ALLOPURINOL

REACTIONS (3)
  - Jaundice [Unknown]
  - Hepatic enzyme increased [Unknown]
  - Pyrexia [Unknown]

NARRATIVE: CASE EVENT DATE: 201409
